FAERS Safety Report 19492827 (Version 1)
Quarter: 2021Q3

REPORT INFORMATION
  Report Type: Other
  Country: US (occurrence: US)
  Receive Date: 20210705
  Receipt Date: 20210705
  Transmission Date: 20211014
  Serious: Yes (Other)
  Sender: FDA-Public Use
  Company Number: US-ROCHE-2855368

PATIENT
  Age: 6 Month
  Sex: Male

DRUGS (7)
  1. RISDIPLAM. [Suspect]
     Active Substance: RISDIPLAM
     Route: 065
     Dates: start: 20200825
  2. RISDIPLAM. [Suspect]
     Active Substance: RISDIPLAM
     Route: 065
     Dates: start: 20200629
  3. RISDIPLAM. [Suspect]
     Active Substance: RISDIPLAM
     Route: 065
     Dates: start: 20200727
  4. ZOLGENSMA [Concomitant]
     Active Substance: ONASEMNOGENE ABEPARVOVEC-XIOI
     Route: 042
     Dates: start: 20191018
  5. RISDIPLAM. [Suspect]
     Active Substance: RISDIPLAM
     Route: 065
     Dates: start: 20200928, end: 20201028
  6. RISDIPLAM. [Suspect]
     Active Substance: RISDIPLAM
     Route: 065
     Dates: start: 20201130
  7. RISDIPLAM. [Suspect]
     Active Substance: RISDIPLAM
     Indication: SPINAL MUSCULAR ATROPHY
     Route: 065
     Dates: start: 20200529

REACTIONS (5)
  - Pyrexia [Recovered/Resolved]
  - Cerebral ventricle dilatation [Unknown]
  - Macrocephaly [Unknown]
  - Cerebral atrophy [Unknown]
  - Hydrocephalus [Unknown]
